FAERS Safety Report 9032451 (Version 2)
Quarter: 2013Q1

REPORT INFORMATION
  Report Type: Spontaneous
  Country: US (occurrence: US)
  Receive Date: 20130125
  Receipt Date: 20130325
  Transmission Date: 20140127
  Serious: Yes (Hospitalization)
  Sender: FDA-Public Use
  Company Number: US-GLAXOSMITHKLINE-A1009534A

PATIENT
  Age: 69 Year
  Sex: Female

DRUGS (2)
  1. PROMACTA [Suspect]
     Dosage: 25MG UNKNOWN
     Route: 048
     Dates: start: 20100507
  2. PRADAXA [Suspect]
     Indication: PRODUCT USED FOR UNKNOWN INDICATION

REACTIONS (1)
  - Cerebral thrombosis [Unknown]
